FAERS Safety Report 24160569 (Version 1)
Quarter: 2024Q3

REPORT INFORMATION
  Report Type: Spontaneous
  Country: BR (occurrence: None)
  Receive Date: 20240801
  Receipt Date: 20240801
  Transmission Date: 20241017
  Serious: Yes (Other)
  Sender: ASTRAZENECA
  Company Number: 2024A172292

PATIENT
  Age: 20546 Day
  Sex: Female

DRUGS (2)
  1. DAPAGLIFLOZIN [Suspect]
     Active Substance: DAPAGLIFLOZIN
     Dosage: A TABLET
     Route: 048
  2. METOPROLOL SUCCINATE [Suspect]
     Active Substance: METOPROLOL SUCCINATE
     Indication: Arrhythmia
     Dosage: A TABLET
     Route: 048
     Dates: start: 202401

REACTIONS (8)
  - Arrhythmia [Unknown]
  - Blood glucose increased [Unknown]
  - Vision blurred [Unknown]
  - Hypothyroidism [Unknown]
  - Thyroid mass [Unknown]
  - Peripheral swelling [Unknown]
  - Fatigue [Unknown]
  - Product use issue [Unknown]

NARRATIVE: CASE EVENT DATE: 20240601
